FAERS Safety Report 9988757 (Version 1)
Quarter: 2013Q4

REPORT INFORMATION
  Report Type: Report from Study
  Country: JP (occurrence: None)
  Receive Date: 20131016
  Receipt Date: 20131016
  Transmission Date: 20140711
  Serious: Yes (Other)
  Sender: FDA-Public Use
  Company Number: JP-2012-10286

PATIENT
  Age: 85 Year
  Sex: Female
  Weight: 41 kg

DRUGS (14)
  1. TOLVAPTAN [Suspect]
     Indication: CARDIAC FAILURE
     Dates: start: 20120113, end: 20120115
  2. VASOLAN (VERAPAMIL HYDROCHLORIDE) [Concomitant]
  3. ALLELOCK (OLOPATADINE HYDROCHLORIDE) [Concomitant]
  4. MAINTATE (BISOPROLOL FUMARATE) [Concomitant]
  5. ALLORIN (ALLOPURINOL) [Concomitant]
  6. TAKEPRON (LANSOPRAZOLE) [Concomitant]
  7. SENNOSIDE (SENNOSIDE A+B CALCIUM) [Concomitant]
  8. SEIBULE (MIGLITOL) [Concomitant]
  9. MYSLEE (ZOLPIDEM TARTRATE) [Concomitant]
  10. AMARYL (GLIMEPIRIDE) [Concomitant]
  11. WARFARIN (WARFARIN POTASSIUM) [Concomitant]
  12. SANCOBA (CYANOCOBALAMIN) [Concomitant]
  13. CRAVIT (LEVOFLOXACIN) [Concomitant]
  14. MAGOTIRON (VERAPAMIL HYDROCHLORIDE) [Concomitant]

REACTIONS (1)
  - Renal failure acute [None]
